FAERS Safety Report 9019860 (Version 2)
Quarter: 2013Q1

REPORT INFORMATION
  Report Type: Spontaneous
  Country: US (occurrence: US)
  Receive Date: 20130118
  Receipt Date: 20130214
  Transmission Date: 20140127
  Serious: Yes (Other)
  Sender: FDA-Public Use
  Company Number: US-PFIZER INC-2013018517

PATIENT
  Age: 48 Year
  Sex: Female

DRUGS (10)
  1. LIPITOR [Suspect]
     Indication: HYPERLIPIDAEMIA
     Dosage: 20 MG, 1X/DAY
     Route: 048
     Dates: start: 199408
  2. NEXIUM [Concomitant]
     Dosage: 40 MG, 1X/DAY
  3. VASOTEC [Concomitant]
     Dosage: 5 MG, 1X/DAY
  4. VISTARIL [Concomitant]
     Dosage: 50 MG, DAILY AS NEEDED
  5. METFORMIN [Concomitant]
     Dosage: 1 G, 2X/DAY
  6. GLIPIZIDE [Concomitant]
     Dosage: 10 MG, 2X/DAY
  7. SYNTHROID [Concomitant]
     Dosage: 150 UG, 1X/DAY
  8. PAXIL [Concomitant]
     Dosage: 20 MG, 1X/DAY
  9. ASA [Concomitant]
     Dosage: 81 MG, UNK
  10. NABUMETONE [Concomitant]
     Dosage: 750 MG, 2X/DAY

REACTIONS (1)
  - Road traffic accident [Unknown]
